FAERS Safety Report 15918125 (Version 3)
Quarter: 2019Q1

REPORT INFORMATION
  Report Type: Report from Study
  Country: None (occurrence: US)
  Receive Date: 20190205
  Receipt Date: 20190208
  Transmission Date: 20190417
  Serious: Yes (Life-Threatening, Other)
  Sender: FDA-Public Use
  Company Number: US-ABBVIE-19S-163-2649751-00

PATIENT
  Age: 62 Year
  Sex: Male
  Weight: 80.36 kg

DRUGS (1)
  1. LUPRON DEPOT [Suspect]
     Active Substance: LEUPROLIDE ACETATE
     Indication: PROSTATE CANCER
     Route: 030
     Dates: end: 20180521

REACTIONS (6)
  - Hospice care [Unknown]
  - Bone neoplasm [Unknown]
  - Hyperreflexia [Unknown]
  - Spinal cord compression [Unknown]
  - Compression fracture [Unknown]
  - Prostate cancer metastatic [Unknown]

NARRATIVE: CASE EVENT DATE: 2018
